FAERS Safety Report 10481952 (Version 1)
Quarter: 2014Q3

REPORT INFORMATION
  Report Type: Spontaneous
  Country: DE (occurrence: DE)
  Receive Date: 20140929
  Receipt Date: 20140929
  Transmission Date: 20150326
  Serious: Yes (Other)
  Sender: FDA-Public Use
  Company Number: GXKR2014DE003628

PATIENT
  Age: 45 Year
  Sex: Female
  Weight: 65 kg

DRUGS (5)
  1. MOMETAHEXAL [Suspect]
     Active Substance: MOMETASONE
     Dosage: UNK UKN, BID
     Route: 045
  2. VALSACOR [Concomitant]
     Active Substance: VALSARTAN
     Route: 048
  3. DOCITON [Concomitant]
  4. L-THYROX [Concomitant]
     Active Substance: LEVOTHYROXINE SODIUM
  5. HCT [Concomitant]
     Active Substance: HYDROCHLOROTHIAZIDE

REACTIONS (1)
  - Blood pressure increased [Unknown]

NARRATIVE: CASE EVENT DATE: 20140819
